FAERS Safety Report 20848992 (Version 1)
Quarter: 2022Q2

REPORT INFORMATION
  Report Type: Spontaneous
  Country: AT (occurrence: AT)
  Receive Date: 20220519
  Receipt Date: 20220519
  Transmission Date: 20220721
  Serious: Yes (Other)
  Sender: FDA-Public Use
  Company Number: AT-NOVARTISPH-NVSC2022AT113586

PATIENT
  Age: 33 Year
  Sex: Female

DRUGS (2)
  1. CARBOPLATIN [Suspect]
     Active Substance: CARBOPLATIN
     Indication: Ovarian dysgerminoma stage III
     Dosage: AUC 5 (TOTAL 3 CYCLES) AND EACH CYCLE REPEATED EVERY 3 WEEKS
     Route: 065
  2. PACLITAXEL [Suspect]
     Active Substance: PACLITAXEL
     Indication: Ovarian dysgerminoma stage III
     Dosage: 175 MG/M2 (TOTAL 3 CYCLES) AND EACH CYCLE REPEATED EVERY 3 WEEKS
     Route: 065

REACTIONS (2)
  - Premature delivery [Unknown]
  - Maternal exposure during pregnancy [Unknown]
